FAERS Safety Report 6903852-6 (Version None)
Quarter: 2010Q3

REPORT INFORMATION
  Report Type: 
  Country: None (occurrence: None)
  Receive Date: 20100804
  Receipt Date: 20090109
  Transmission Date: 20110219
  Serious: Yes (Other)
  Sender: FDA-Public Use
  Company Number: US-PFIZER INC-2008084143

PATIENT
  Sex: Female
  Weight: 63.5 kg

DRUGS (8)
  1. LYRICA [Suspect]
     Indication: FIBROMYALGIA
     Dates: start: 20080401
  2. LYRICA [Suspect]
     Indication: RHEUMATOID ARTHRITIS
  3. CYMBALTA [Concomitant]
     Dates: end: 20080901
  4. CORTISONE [Concomitant]
     Route: 042
  5. HYDROXYCHLOROQUINE [Concomitant]
     Dates: start: 20080401
  6. METHOTREXATE [Concomitant]
  7. HUMIRA [Concomitant]
  8. VICODIN [Concomitant]

REACTIONS (2)
  - HYPOTHYROIDISM [None]
  - WEIGHT INCREASED [None]
